FAERS Safety Report 24974982 (Version 1)
Quarter: 2025Q1

REPORT INFORMATION
  Report Type: Spontaneous
  Country: FR (occurrence: FR)
  Receive Date: 20250217
  Receipt Date: 20250217
  Transmission Date: 20250408
  Serious: Yes (Life-Threatening, Hospitalization, Other)
  Sender: UNICHEM
  Company Number: FR-UNICHEM LABORATORIES LIMITED-UNI-2025-FR-001284

PATIENT

DRUGS (1)
  1. BACLOFEN [Suspect]
     Active Substance: BACLOFEN
     Indication: Product used for unknown indication
     Route: 037

REACTIONS (7)
  - Coma [Unknown]
  - Accidental overdose [Unknown]
  - Generalised tonic-clonic seizure [Unknown]
  - Tachycardia [Unknown]
  - Pneumonia [Unknown]
  - Hypotension [Unknown]
  - Sinus bradycardia [Unknown]
